FAERS Safety Report 5331361-7 (Version None)
Quarter: 2007Q2

REPORT INFORMATION
  Report Type: 
  Country: None (occurrence: None)
  Receive Date: 20070522
  Receipt Date: 20070510
  Transmission Date: 20071010
  Serious: Yes (Death)
  Sender: FDA-Public Use
  Company Number: AU-SANOFI-SYNTHELABO-A01200704957

PATIENT
  Age: 53 Year
  Sex: Male

DRUGS (2)
  1. CITALOPRAM HYDROBROMIDE [Suspect]
     Indication: DRUG USE FOR UNKNOWN INDICATION
     Route: 048
     Dates: end: 20070228
  2. STILNOX [Suspect]
     Indication: DRUG USE FOR UNKNOWN INDICATION
     Dosage: 30 MG
     Route: 048
     Dates: end: 20070228

REACTIONS (5)
  - ABNORMAL SLEEP-RELATED EVENT [None]
  - COMPLETED SUICIDE [None]
  - DRUG TOLERANCE INCREASED [None]
  - INTENTIONAL OVERDOSE [None]
  - SLEEP WALKING [None]
